FAERS Safety Report 22065684 (Version 11)
Quarter: 2025Q4

REPORT INFORMATION
  Report Type: Spontaneous
  Country: CA (occurrence: CA)
  Receive Date: 20230306
  Receipt Date: 20251022
  Transmission Date: 20260117
  Serious: Yes (Death, Other)
  Sender: BRISTOL-MYERS SQUIBB COMPANY
  Company Number: CA-BRISTOL-MYERS SQUIBB COMPANY-2023-032579

PATIENT
  Age: 44 Year
  Sex: Female
  Weight: 96 kg

DRUGS (823)
  1. ORENCIA [Suspect]
     Active Substance: ABATACEPT
     Indication: Rheumatoid arthritis
  2. ORENCIA [Suspect]
     Active Substance: ABATACEPT
  3. ORENCIA [Suspect]
     Active Substance: ABATACEPT
  4. ORENCIA [Suspect]
     Active Substance: ABATACEPT
  5. ORENCIA [Suspect]
     Active Substance: ABATACEPT
  6. ORENCIA [Suspect]
     Active Substance: ABATACEPT
  7. ORENCIA [Suspect]
     Active Substance: ABATACEPT
  8. ORENCIA [Suspect]
     Active Substance: ABATACEPT
  9. ORENCIA [Suspect]
     Active Substance: ABATACEPT
  10. ORENCIA [Suspect]
     Active Substance: ABATACEPT
  11. ORENCIA [Suspect]
     Active Substance: ABATACEPT
  12. ORENCIA [Suspect]
     Active Substance: ABATACEPT
     Indication: Rheumatoid arthritis
  13. ORENCIA [Suspect]
     Active Substance: ABATACEPT
  14. ORENCIA [Suspect]
     Active Substance: ABATACEPT
  15. ORENCIA [Suspect]
     Active Substance: ABATACEPT
  16. ORENCIA [Suspect]
     Active Substance: ABATACEPT
  17. ORENCIA [Suspect]
     Active Substance: ABATACEPT
  18. ORENCIA [Suspect]
     Active Substance: ABATACEPT
  19. ORENCIA [Suspect]
     Active Substance: ABATACEPT
  20. ORENCIA [Suspect]
     Active Substance: ABATACEPT
  21. ORENCIA [Suspect]
     Active Substance: ABATACEPT
  22. ORENCIA [Suspect]
     Active Substance: ABATACEPT
  23. ORENCIA [Suspect]
     Active Substance: ABATACEPT
  24. TRIAMCINOLONE ACETONIDE [Suspect]
     Active Substance: TRIAMCINOLONE ACETONIDE
     Indication: Rheumatoid arthritis
  25. TRIAMCINOLONE ACETONIDE [Suspect]
     Active Substance: TRIAMCINOLONE ACETONIDE
  26. ORENCIA [Suspect]
     Active Substance: ABATACEPT
     Indication: Rheumatoid arthritis
  27. ORENCIA [Suspect]
     Active Substance: ABATACEPT
  28. ORENCIA [Suspect]
     Active Substance: ABATACEPT
  29. ORENCIA [Suspect]
     Active Substance: ABATACEPT
  30. ORENCIA [Suspect]
     Active Substance: ABATACEPT
  31. ORENCIA [Suspect]
     Active Substance: ABATACEPT
  32. ORENCIA [Suspect]
     Active Substance: ABATACEPT
  33. ORENCIA [Suspect]
     Active Substance: ABATACEPT
  34. ORENCIA [Suspect]
     Active Substance: ABATACEPT
  35. ORENCIA [Suspect]
     Active Substance: ABATACEPT
  36. BOTULINUM TOXIN TYPE A [Concomitant]
     Active Substance: BOTULINUM TOXIN TYPE A
     Indication: Product used for unknown indication
     Dosage: POWDER FOR SOLUTION
  37. FOSAMAX [Concomitant]
     Active Substance: ALENDRONATE SODIUM
     Indication: Rheumatoid arthritis
  38. FOSAMAX [Concomitant]
     Active Substance: ALENDRONATE SODIUM
  39. FOSAMAX [Concomitant]
     Active Substance: ALENDRONATE SODIUM
  40. FOSAMAX [Concomitant]
     Active Substance: ALENDRONATE SODIUM
  41. ACETAMINOPHEN [Concomitant]
     Active Substance: ACETAMINOPHEN
     Indication: Rheumatoid arthritis
  42. ACETAMINOPHEN [Concomitant]
     Active Substance: ACETAMINOPHEN
     Indication: Pyrexia
  43. ACETAMINOPHEN [Concomitant]
     Active Substance: ACETAMINOPHEN
  44. ACETAMINOPHEN [Concomitant]
     Active Substance: ACETAMINOPHEN
  45. ACETAMINOPHEN [Concomitant]
     Active Substance: ACETAMINOPHEN
  46. ACETAMINOPHEN [Concomitant]
     Active Substance: ACETAMINOPHEN
  47. ACETAMINOPHEN\CODEINE PHOSPHATE [Concomitant]
     Active Substance: ACETAMINOPHEN\CODEINE PHOSPHATE
     Indication: Product used for unknown indication
  48. ACETAMINOPHEN\CODEINE PHOSPHATE [Concomitant]
     Active Substance: ACETAMINOPHEN\CODEINE PHOSPHATE
  49. ACTEMRA [Concomitant]
     Active Substance: TOCILIZUMAB
     Indication: Rheumatoid arthritis
  50. ACTEMRA [Concomitant]
     Active Substance: TOCILIZUMAB
  51. ACTEMRA [Concomitant]
     Active Substance: TOCILIZUMAB
  52. ACTEMRA [Concomitant]
     Active Substance: TOCILIZUMAB
  53. ACTEMRA [Concomitant]
     Active Substance: TOCILIZUMAB
  54. ACTEMRA [Concomitant]
     Active Substance: TOCILIZUMAB
  55. ACTEMRA [Concomitant]
     Active Substance: TOCILIZUMAB
  56. ACTEMRA [Concomitant]
     Active Substance: TOCILIZUMAB
  57. ACTEMRA [Concomitant]
     Active Substance: TOCILIZUMAB
  58. ACTEMRA [Concomitant]
     Active Substance: TOCILIZUMAB
  59. ACTEMRA [Concomitant]
     Active Substance: TOCILIZUMAB
  60. ACTEMRA [Concomitant]
     Active Substance: TOCILIZUMAB
  61. ACTEMRA [Concomitant]
     Active Substance: TOCILIZUMAB
  62. ACTEMRA [Concomitant]
     Active Substance: TOCILIZUMAB
  63. ACTEMRA [Concomitant]
     Active Substance: TOCILIZUMAB
  64. ACTEMRA [Concomitant]
     Active Substance: TOCILIZUMAB
  65. ACTEMRA [Concomitant]
     Active Substance: TOCILIZUMAB
  66. ACTEMRA [Concomitant]
     Active Substance: TOCILIZUMAB
  67. ACTEMRA [Concomitant]
     Active Substance: TOCILIZUMAB
  68. ACTEMRA [Concomitant]
     Active Substance: TOCILIZUMAB
  69. ACTEMRA [Concomitant]
     Active Substance: TOCILIZUMAB
  70. ACTEMRA [Concomitant]
     Active Substance: TOCILIZUMAB
  71. ACTEMRA [Concomitant]
     Active Substance: TOCILIZUMAB
  72. ACTEMRA [Concomitant]
     Active Substance: TOCILIZUMAB
  73. ACTEMRA [Concomitant]
     Active Substance: TOCILIZUMAB
  74. ADALIMUMAB [Concomitant]
     Active Substance: ADALIMUMAB
     Indication: Psoriatic arthropathy
  75. ADALIMUMAB [Concomitant]
     Active Substance: ADALIMUMAB
     Indication: Rheumatoid arthritis
  76. ADALIMUMAB [Concomitant]
     Active Substance: ADALIMUMAB
  77. ADALIMUMAB [Concomitant]
     Active Substance: ADALIMUMAB
  78. ADALIMUMAB [Concomitant]
     Active Substance: ADALIMUMAB
  79. ADALIMUMAB [Concomitant]
     Active Substance: ADALIMUMAB
  80. ADALIMUMAB [Concomitant]
     Active Substance: ADALIMUMAB
  81. ADALIMUMAB [Concomitant]
     Active Substance: ADALIMUMAB
  82. ADALIMUMAB [Concomitant]
     Active Substance: ADALIMUMAB
  83. ALENDRONIC ACID [Concomitant]
     Active Substance: ALENDRONIC ACID
     Indication: Rheumatoid arthritis
  84. ALENDRONIC ACID [Concomitant]
     Active Substance: ALENDRONIC ACID
  85. ALENDRONIC ACID [Concomitant]
     Active Substance: ALENDRONIC ACID
  86. ALENDRONIC ACID [Concomitant]
     Active Substance: ALENDRONIC ACID
  87. ALENDRONIC ACID [Concomitant]
     Active Substance: ALENDRONIC ACID
  88. ALENDRONIC ACID [Concomitant]
     Active Substance: ALENDRONIC ACID
  89. PREDNISONE [Concomitant]
     Active Substance: PREDNISONE
     Indication: Rheumatoid arthritis
  90. PREDNISONE [Concomitant]
     Active Substance: PREDNISONE
  91. PREDNISONE [Concomitant]
     Active Substance: PREDNISONE
  92. PREDNISONE [Concomitant]
     Active Substance: PREDNISONE
  93. PREDNISONE [Concomitant]
     Active Substance: PREDNISONE
  94. PREDNISONE [Concomitant]
     Active Substance: PREDNISONE
  95. APREMILAST [Concomitant]
     Active Substance: APREMILAST
     Indication: Rheumatoid arthritis
  96. APREMILAST [Concomitant]
     Active Substance: APREMILAST
  97. APREMILAST [Concomitant]
     Active Substance: APREMILAST
  98. ARAVA [Concomitant]
     Active Substance: LEFLUNOMIDE
     Indication: Rheumatoid arthritis
  99. ARAVA [Concomitant]
     Active Substance: LEFLUNOMIDE
  100. ARAVA [Concomitant]
     Active Substance: LEFLUNOMIDE
  101. ARAVA [Concomitant]
     Active Substance: LEFLUNOMIDE
  102. ARAVA [Concomitant]
     Active Substance: LEFLUNOMIDE
  103. ARAVA [Concomitant]
     Active Substance: LEFLUNOMIDE
  104. ARAVA [Concomitant]
     Active Substance: LEFLUNOMIDE
  105. ARAVA [Concomitant]
     Active Substance: LEFLUNOMIDE
  106. ATIVAN [Concomitant]
     Active Substance: LORAZEPAM
     Indication: Anxiety
  107. ATIVAN [Concomitant]
     Active Substance: LORAZEPAM
     Indication: Rheumatoid arthritis
  108. CAFFEINE [Concomitant]
     Active Substance: CAFFEINE
     Indication: Rheumatoid arthritis
  109. CAFFEINE CITRATE [Concomitant]
     Active Substance: CAFFEINE CITRATE
     Indication: Product used for unknown indication
  110. CALCIUM [Concomitant]
     Active Substance: CALCIUM
     Indication: Product used for unknown indication
  111. CALCIUM CARBONATE [Concomitant]
     Active Substance: CALCIUM CARBONATE
     Indication: Product used for unknown indication
  112. CALCIUM CARBONATE [Concomitant]
     Active Substance: CALCIUM CARBONATE
  113. CALCIUM CARBONATE\CALCIUM LACTATE GLUCONATE [Concomitant]
     Active Substance: CALCIUM CARBONATE\CALCIUM LACTATE GLUCONATE
     Indication: Product used for unknown indication
  114. CALCIUM GLUBIONATE [Concomitant]
     Active Substance: CALCIUM GLUBIONATE
     Indication: Product used for unknown indication
  115. CELEBREX [Concomitant]
     Active Substance: CELECOXIB
     Indication: Rheumatoid arthritis
  116. CELEBREX [Concomitant]
     Active Substance: CELECOXIB
     Indication: Arthritis
  117. CELEBREX [Concomitant]
     Active Substance: CELECOXIB
  118. CELEBREX [Concomitant]
     Active Substance: CELECOXIB
  119. CELEBREX [Concomitant]
     Active Substance: CELECOXIB
  120. CELEBREX [Concomitant]
     Active Substance: CELECOXIB
  121. CERTOLIZUMAB PEGOL [Concomitant]
     Active Substance: CERTOLIZUMAB PEGOL
     Indication: Product used for unknown indication
  122. CERTOLIZUMAB PEGOL [Concomitant]
     Active Substance: CERTOLIZUMAB PEGOL
  123. CETIRIZINE [Concomitant]
     Active Substance: CETIRIZINE HYDROCHLORIDE
     Indication: Rheumatoid arthritis
  124. CETIRIZINE [Concomitant]
     Active Substance: CETIRIZINE HYDROCHLORIDE
  125. CETIRIZINE [Concomitant]
     Active Substance: CETIRIZINE HYDROCHLORIDE
  126. CETIRIZINE [Concomitant]
     Active Substance: CETIRIZINE HYDROCHLORIDE
  127. CETIRIZINE [Concomitant]
     Active Substance: CETIRIZINE HYDROCHLORIDE
  128. CETIRIZINE [Concomitant]
     Active Substance: CETIRIZINE HYDROCHLORIDE
  129. CETIRIZINE [Concomitant]
     Active Substance: CETIRIZINE HYDROCHLORIDE
  130. CETIRIZINE [Concomitant]
     Active Substance: CETIRIZINE HYDROCHLORIDE
  131. CETIRIZINE [Concomitant]
     Active Substance: CETIRIZINE HYDROCHLORIDE
  132. CETIRIZINE HYDROCHLORIDE [Concomitant]
     Active Substance: CETIRIZINE HYDROCHLORIDE
     Indication: Rheumatoid arthritis
  133. CETIRIZINE HYDROCHLORIDE [Concomitant]
     Active Substance: CETIRIZINE HYDROCHLORIDE
  134. CETIRIZINE HYDROCHLORIDE [Concomitant]
     Active Substance: CETIRIZINE HYDROCHLORIDE
  135. CETIRIZINE HYDROCHLORIDE [Concomitant]
     Active Substance: CETIRIZINE HYDROCHLORIDE
  136. CETIRIZINE HYDROCHLORIDE [Concomitant]
     Active Substance: CETIRIZINE HYDROCHLORIDE
  137. CETIRIZINE HYDROCHLORIDE [Concomitant]
     Active Substance: CETIRIZINE HYDROCHLORIDE
  138. CETIRIZINE HYDROCHLORIDE [Concomitant]
     Active Substance: CETIRIZINE HYDROCHLORIDE
  139. CETIRIZINE HYDROCHLORIDE [Concomitant]
     Active Substance: CETIRIZINE HYDROCHLORIDE
  140. CETIRIZINE HYDROCHLORIDE [Concomitant]
     Active Substance: CETIRIZINE HYDROCHLORIDE
  141. CETIRIZINE HYDROCHLORIDE [Concomitant]
     Active Substance: CETIRIZINE HYDROCHLORIDE
  142. CETIRIZINE HYDROCHLORIDE [Concomitant]
     Active Substance: CETIRIZINE HYDROCHLORIDE
  143. CETIRIZINE HYDROCHLORIDE [Concomitant]
     Active Substance: CETIRIZINE HYDROCHLORIDE
  144. CETIRIZINE HYDROCHLORIDE [Concomitant]
     Active Substance: CETIRIZINE HYDROCHLORIDE
  145. CETIRIZINE HYDROCHLORIDE [Concomitant]
     Active Substance: CETIRIZINE HYDROCHLORIDE
  146. CETIRIZINE HYDROCHLORIDE [Concomitant]
     Active Substance: CETIRIZINE HYDROCHLORIDE
  147. CETIRIZINE HYDROCHLORIDE [Concomitant]
     Active Substance: CETIRIZINE HYDROCHLORIDE
  148. CETIRIZINE HYDROCHLORIDE [Concomitant]
     Active Substance: CETIRIZINE HYDROCHLORIDE
  149. CETIRIZINE HYDROCHLORIDE [Concomitant]
     Active Substance: CETIRIZINE HYDROCHLORIDE
  150. CETIRIZINE HYDROCHLORIDE [Concomitant]
     Active Substance: CETIRIZINE HYDROCHLORIDE
  151. CETIRIZINE HYDROCHLORIDE [Concomitant]
     Active Substance: CETIRIZINE HYDROCHLORIDE
  152. CHLORHEXIDINE [Concomitant]
     Active Substance: CHLORHEXIDINE
     Indication: Product used for unknown indication
  153. CHLORHEXIDINE [Concomitant]
     Active Substance: CHLORHEXIDINE
  154. CHLORHEXIDINE [Concomitant]
     Active Substance: CHLORHEXIDINE
  155. CHLORHEXIDINE [Concomitant]
     Active Substance: CHLORHEXIDINE
  156. CHLORHEXIDINE GLUCONATE [Concomitant]
     Active Substance: CHLORHEXIDINE GLUCONATE
     Indication: Product used for unknown indication
  157. CHLORHEXIDINE GLUCONATE [Concomitant]
     Active Substance: CHLORHEXIDINE GLUCONATE
  158. CHLORHEXIDINE GLUCONATE [Concomitant]
     Active Substance: CHLORHEXIDINE GLUCONATE
  159. CIMZIA [Concomitant]
     Active Substance: CERTOLIZUMAB PEGOL
     Indication: Rheumatoid arthritis
  160. CIMZIA [Concomitant]
     Active Substance: CERTOLIZUMAB PEGOL
     Indication: Psoriasis
  161. CIMZIA [Concomitant]
     Active Substance: CERTOLIZUMAB PEGOL
  162. CIMZIA [Concomitant]
     Active Substance: CERTOLIZUMAB PEGOL
  163. CIMZIA [Concomitant]
     Active Substance: CERTOLIZUMAB PEGOL
  164. CIMZIA [Concomitant]
     Active Substance: CERTOLIZUMAB PEGOL
  165. CIMZIA [Concomitant]
     Active Substance: CERTOLIZUMAB PEGOL
  166. CIMZIA [Concomitant]
     Active Substance: CERTOLIZUMAB PEGOL
  167. CIMZIA [Concomitant]
     Active Substance: CERTOLIZUMAB PEGOL
  168. CIMZIA [Concomitant]
     Active Substance: CERTOLIZUMAB PEGOL
  169. CIMZIA [Concomitant]
     Active Substance: CERTOLIZUMAB PEGOL
  170. CIMZIA [Concomitant]
     Active Substance: CERTOLIZUMAB PEGOL
  171. CODEINE [Concomitant]
     Active Substance: CODEINE
     Indication: Rheumatoid arthritis
  172. CORTISONE (HYDROCORTISONE) [Concomitant]
     Active Substance: HYDROCORTISONE
     Indication: Rheumatoid arthritis
  173. CORTISONE (HYDROCORTISONE) [Concomitant]
     Active Substance: HYDROCORTISONE
  174. CORTISONE (HYDROCORTISONE) [Concomitant]
     Active Substance: HYDROCORTISONE
  175. CORTISONE (HYDROCORTISONE) [Concomitant]
     Active Substance: HYDROCORTISONE
  176. CORTISONE (HYDROCORTISONE) [Concomitant]
     Active Substance: HYDROCORTISONE
  177. CORTISONE (HYDROCORTISONE) [Concomitant]
     Active Substance: HYDROCORTISONE
  178. CORTISONE (HYDROCORTISONE) [Concomitant]
     Active Substance: HYDROCORTISONE
  179. CORTISONE (HYDROCORTISONE) [Concomitant]
     Active Substance: HYDROCORTISONE
  180. CORTISONE (HYDROCORTISONE) [Concomitant]
     Active Substance: HYDROCORTISONE
  181. CORTISONE (HYDROCORTISONE) [Concomitant]
     Active Substance: HYDROCORTISONE
  182. CORTISONE (HYDROCORTISONE) [Concomitant]
     Active Substance: HYDROCORTISONE
  183. CORTISONE (HYDROCORTISONE) [Concomitant]
     Active Substance: HYDROCORTISONE
  184. CORTISONE (HYDROCORTISONE) [Concomitant]
     Active Substance: HYDROCORTISONE
  185. CORTISONE ACETATE [Concomitant]
     Active Substance: CORTISONE ACETATE
     Indication: Rheumatoid arthritis
  186. CORTISONE ACETATE [Concomitant]
     Active Substance: CORTISONE ACETATE
  187. CORTISONE ACETATE [Concomitant]
     Active Substance: CORTISONE ACETATE
  188. CORTISONE ACETATE [Concomitant]
     Active Substance: CORTISONE ACETATE
  189. CORTISONE ACETATE [Concomitant]
     Active Substance: CORTISONE ACETATE
  190. CORTISONE ACETATE [Concomitant]
     Active Substance: CORTISONE ACETATE
  191. CORTISONE ACETATE [Concomitant]
     Active Substance: CORTISONE ACETATE
  192. CORTISONE ACETATE [Concomitant]
     Active Substance: CORTISONE ACETATE
  193. COSENTYX [Concomitant]
     Active Substance: SECUKINUMAB
     Indication: Rheumatoid arthritis
  194. COSENTYX [Concomitant]
     Active Substance: SECUKINUMAB
     Indication: Psoriatic arthropathy
  195. COSENTYX [Concomitant]
     Active Substance: SECUKINUMAB
  196. COSENTYX [Concomitant]
     Active Substance: SECUKINUMAB
  197. COSENTYX [Concomitant]
     Active Substance: SECUKINUMAB
  198. COSENTYX [Concomitant]
     Active Substance: SECUKINUMAB
  199. DESOGESTREL [Concomitant]
     Active Substance: DESOGESTREL
     Indication: Product used for unknown indication
  200. DESOGESTREL AND ETHINYL ESTRADIOL [Concomitant]
     Active Substance: DESOGESTREL\ETHINYL ESTRADIOL
     Indication: Product used for unknown indication
  201. DESOXIMETASONE [Concomitant]
     Active Substance: DESOXIMETASONE
     Indication: Rheumatoid arthritis
  202. DESOXIMETASONE [Concomitant]
     Active Substance: DESOXIMETASONE
  203. DESOXIMETASONE [Concomitant]
     Active Substance: DESOXIMETASONE
  204. DESOXIMETASONE [Concomitant]
     Active Substance: DESOXIMETASONE
  205. DESOXIMETASONE [Concomitant]
     Active Substance: DESOXIMETASONE
  206. DESOXIMETASONE [Concomitant]
     Active Substance: DESOXIMETASONE
  207. DESOXIMETASONE [Concomitant]
     Active Substance: DESOXIMETASONE
  208. DESOXIMETASONE [Concomitant]
     Active Substance: DESOXIMETASONE
  209. DESOXIMETASONE [Concomitant]
     Active Substance: DESOXIMETASONE
  210. DESOXIMETASONE [Concomitant]
     Active Substance: DESOXIMETASONE
  211. DESOXIMETASONE [Concomitant]
     Active Substance: DESOXIMETASONE
  212. DESOXIMETASONE [Concomitant]
     Active Substance: DESOXIMETASONE
  213. DESOXIMETASONE [Concomitant]
     Active Substance: DESOXIMETASONE
  214. DESOXIMETASONE [Concomitant]
     Active Substance: DESOXIMETASONE
  215. DESOXIMETASONE [Concomitant]
     Active Substance: DESOXIMETASONE
  216. DESOXIMETASONE [Concomitant]
     Active Substance: DESOXIMETASONE
  217. DESOXIMETASONE [Concomitant]
     Active Substance: DESOXIMETASONE
  218. DESOXIMETASONE [Concomitant]
     Active Substance: DESOXIMETASONE
  219. DESOXIMETASONE [Concomitant]
     Active Substance: DESOXIMETASONE
  220. DESOXIMETASONE [Concomitant]
     Active Substance: DESOXIMETASONE
  221. DESOXIMETASONE [Concomitant]
     Active Substance: DESOXIMETASONE
  222. DESOXIMETASONE [Concomitant]
     Active Substance: DESOXIMETASONE
  223. DESOXIMETASONE [Concomitant]
     Active Substance: DESOXIMETASONE
  224. DESOXIMETASONE [Concomitant]
     Active Substance: DESOXIMETASONE
  225. DESOXIMETASONE [Concomitant]
     Active Substance: DESOXIMETASONE
  226. DESOXIMETASONE [Concomitant]
     Active Substance: DESOXIMETASONE
  227. DESOXIMETASONE [Concomitant]
     Active Substance: DESOXIMETASONE
     Dosage: SOLUTION OPHTHALMIC
  228. DICLOFENAC DIETHYLAMINE [Concomitant]
     Active Substance: DICLOFENAC DIETHYLAMINE
     Indication: Product used for unknown indication
  229. DICLOFENAC POTASSIUM [Concomitant]
     Active Substance: DICLOFENAC POTASSIUM
     Indication: Rheumatoid arthritis
  230. DICLOFENAC POTASSIUM [Concomitant]
     Active Substance: DICLOFENAC POTASSIUM
  231. DICLOFENAC POTASSIUM [Concomitant]
     Active Substance: DICLOFENAC POTASSIUM
  232. DICLOFENAC POTASSIUM [Concomitant]
     Active Substance: DICLOFENAC POTASSIUM
  233. DICLOFENAC POTASSIUM [Concomitant]
     Active Substance: DICLOFENAC POTASSIUM
  234. DICLOFENAC POTASSIUM [Concomitant]
     Active Substance: DICLOFENAC POTASSIUM
  235. DICLOFENAC POTASSIUM [Concomitant]
     Active Substance: DICLOFENAC POTASSIUM
  236. DICLOFENAC POTASSIUM [Concomitant]
     Active Substance: DICLOFENAC POTASSIUM
  237. DICLOFENAC SODIUM [Concomitant]
     Active Substance: DICLOFENAC SODIUM
     Indication: Rheumatoid arthritis
  238. DICLOFENAC SODIUM [Concomitant]
     Active Substance: DICLOFENAC SODIUM
  239. DICLOFENAC SODIUM [Concomitant]
     Active Substance: DICLOFENAC SODIUM
  240. DICLOFENAC SODIUM [Concomitant]
     Active Substance: DICLOFENAC SODIUM
  241. DICLOFENAC SODIUM [Concomitant]
     Active Substance: DICLOFENAC SODIUM
  242. DICLOFENAC SODIUM [Concomitant]
     Active Substance: DICLOFENAC SODIUM
  243. DICLOFENAC SODIUM [Concomitant]
     Active Substance: DICLOFENAC SODIUM
  244. DICLOFENAC SODIUM [Concomitant]
     Active Substance: DICLOFENAC SODIUM
  245. DICLOFENAC SODIUM [Concomitant]
     Active Substance: DICLOFENAC SODIUM
  246. DICLOFENAC SODIUM [Concomitant]
     Active Substance: DICLOFENAC SODIUM
  247. DICLOFENAC SODIUM [Concomitant]
     Active Substance: DICLOFENAC SODIUM
  248. ENBREL [Concomitant]
     Active Substance: ETANERCEPT
     Indication: Rheumatoid arthritis
  249. ENBREL [Concomitant]
     Active Substance: ETANERCEPT
     Indication: Psoriatic arthropathy
  250. ENBREL [Concomitant]
     Active Substance: ETANERCEPT
  251. ENBREL [Concomitant]
     Active Substance: ETANERCEPT
  252. ENBREL [Concomitant]
     Active Substance: ETANERCEPT
  253. ERGOCALCIFEROL [Concomitant]
     Active Substance: ERGOCALCIFEROL
     Indication: Rheumatoid arthritis
  254. ERELZI [Concomitant]
     Active Substance: ETANERCEPT-SZZS
     Indication: Rheumatoid arthritis
  255. ERELZI [Concomitant]
     Active Substance: ETANERCEPT-SZZS
  256. ERELZI [Concomitant]
     Active Substance: ETANERCEPT-SZZS
  257. ERELZI [Concomitant]
     Active Substance: ETANERCEPT-SZZS
  258. ERELZI [Concomitant]
     Active Substance: ETANERCEPT-SZZS
  259. ERELZI [Concomitant]
     Active Substance: ETANERCEPT-SZZS
  260. ERELZI [Concomitant]
     Active Substance: ETANERCEPT-SZZS
  261. ERELZI [Concomitant]
     Active Substance: ETANERCEPT-SZZS
  262. ERELZI [Concomitant]
     Active Substance: ETANERCEPT-SZZS
  263. FOLIC ACID [Concomitant]
     Active Substance: FOLIC ACID
     Indication: Rheumatoid arthritis
  264. FOLIC ACID [Concomitant]
     Active Substance: FOLIC ACID
  265. FOLIC ACID [Concomitant]
     Active Substance: FOLIC ACID
  266. FOLIC ACID [Concomitant]
     Active Substance: FOLIC ACID
  267. FOLIC ACID [Concomitant]
     Active Substance: FOLIC ACID
  268. FOLIC ACID [Concomitant]
     Active Substance: FOLIC ACID
  269. FOLIC ACID [Concomitant]
     Active Substance: FOLIC ACID
  270. FOLIC ACID [Concomitant]
     Active Substance: FOLIC ACID
  271. FOLIC ACID [Concomitant]
     Active Substance: FOLIC ACID
  272. FOLIC ACID [Concomitant]
     Active Substance: FOLIC ACID
  273. FOLIC ACID [Concomitant]
     Active Substance: FOLIC ACID
  274. FOLIC ACID [Concomitant]
     Active Substance: FOLIC ACID
  275. FOLIC ACID [Concomitant]
     Active Substance: FOLIC ACID
  276. FOLIC ACID [Concomitant]
     Active Substance: FOLIC ACID
  277. GLUCOSAMINE [Concomitant]
     Active Substance: GLUCOSAMINE
     Indication: Rheumatoid arthritis
  278. GOLIMUMAB [Concomitant]
     Active Substance: GOLIMUMAB
     Indication: Rheumatoid arthritis
  279. GOLIMUMAB [Concomitant]
     Active Substance: GOLIMUMAB
  280. HUMIRA [Concomitant]
     Active Substance: ADALIMUMAB
     Indication: Rheumatoid arthritis
     Dosage: SOLUTION SUBCUTANEOSU
  281. HUMIRA [Concomitant]
     Active Substance: ADALIMUMAB
     Indication: Psoriatic arthropathy
     Dosage: SOLUTION SUBCUTANEOSU
  282. HUMIRA [Concomitant]
     Active Substance: ADALIMUMAB
     Dosage: SOLUTION SUBCUTANEOSU
  283. HUMIRA [Concomitant]
     Active Substance: ADALIMUMAB
     Dosage: SOLUTION SUBCUTANEOSU
  284. HYDROCORTISONE BUTYRATE [Concomitant]
     Active Substance: HYDROCORTISONE BUTYRATE
     Indication: Rheumatoid arthritis
  285. HYDROCORTISONE BUTYRATE [Concomitant]
     Active Substance: HYDROCORTISONE BUTYRATE
  286. HYDROXYCHLOROQUINE [Concomitant]
     Active Substance: HYDROXYCHLOROQUINE
     Indication: Rheumatoid arthritis
  287. HYDROXYCHLOROQUINE [Concomitant]
     Active Substance: HYDROXYCHLOROQUINE
     Indication: Systemic lupus erythematosus
  288. HYDROXYCHLOROQUINE [Concomitant]
     Active Substance: HYDROXYCHLOROQUINE
  289. HYDROXYCHLOROQUINE [Concomitant]
     Active Substance: HYDROXYCHLOROQUINE
  290. HYDROXYCHLOROQUINE [Concomitant]
     Active Substance: HYDROXYCHLOROQUINE
  291. HYDROXYCHLOROQUINE [Concomitant]
     Active Substance: HYDROXYCHLOROQUINE
  292. HYDROXYCHLOROQUINE [Concomitant]
     Active Substance: HYDROXYCHLOROQUINE
  293. HYDROXYCHLOROQUINE [Concomitant]
     Active Substance: HYDROXYCHLOROQUINE
  294. HYDROXYCHLOROQUINE [Concomitant]
     Active Substance: HYDROXYCHLOROQUINE
  295. HYDROXYCHLOROQUINE [Concomitant]
     Active Substance: HYDROXYCHLOROQUINE
  296. HYDROXYCHLOROQUINE SULFATE [Concomitant]
     Active Substance: HYDROXYCHLOROQUINE SULFATE
     Indication: Rheumatoid arthritis
  297. HYDROXYCHLOROQUINE SULFATE [Concomitant]
     Active Substance: HYDROXYCHLOROQUINE SULFATE
     Indication: Systemic lupus erythematosus
  298. HYDROXYCHLOROQUINE SULFATE [Concomitant]
     Active Substance: HYDROXYCHLOROQUINE SULFATE
  299. HYDROXYCHLOROQUINE SULFATE [Concomitant]
     Active Substance: HYDROXYCHLOROQUINE SULFATE
  300. HYDROXYCHLOROQUINE SULFATE [Concomitant]
     Active Substance: HYDROXYCHLOROQUINE SULFATE
  301. HYDROXYCHLOROQUINE SULFATE [Concomitant]
     Active Substance: HYDROXYCHLOROQUINE SULFATE
  302. HYDROXYCHLOROQUINE SULFATE [Concomitant]
     Active Substance: HYDROXYCHLOROQUINE SULFATE
  303. HYDROXYCHLOROQUINE SULFATE [Concomitant]
     Active Substance: HYDROXYCHLOROQUINE SULFATE
  304. HYDROXYCHLOROQUINE SULFATE [Concomitant]
     Active Substance: HYDROXYCHLOROQUINE SULFATE
  305. HYDROXYCHLOROQUINE SULFATE [Concomitant]
     Active Substance: HYDROXYCHLOROQUINE SULFATE
  306. HYDROXYCHLOROQUINE SULFATE [Concomitant]
     Active Substance: HYDROXYCHLOROQUINE SULFATE
  307. IBUPROFEN [Concomitant]
     Active Substance: IBUPROFEN
     Indication: Product used for unknown indication
  308. LANSOPRAZOLE [Concomitant]
     Active Substance: LANSOPRAZOLE
     Indication: Rheumatoid arthritis
     Dosage: CAPSULE DELAYED RELEASE
  309. LEFLUNOMIDE [Concomitant]
     Active Substance: LEFLUNOMIDE
     Indication: Rheumatoid arthritis
  310. LEFLUNOMIDE [Concomitant]
     Active Substance: LEFLUNOMIDE
  311. LEFLUNOMIDE [Concomitant]
     Active Substance: LEFLUNOMIDE
  312. LEFLUNOMIDE [Concomitant]
     Active Substance: LEFLUNOMIDE
  313. LEFLUNOMIDE [Concomitant]
     Active Substance: LEFLUNOMIDE
  314. LEFLUNOMIDE [Concomitant]
     Active Substance: LEFLUNOMIDE
  315. LEFLUNOMIDE [Concomitant]
     Active Substance: LEFLUNOMIDE
  316. LEFLUNOMIDE [Concomitant]
     Active Substance: LEFLUNOMIDE
  317. LEFLUNOMIDE [Concomitant]
     Active Substance: LEFLUNOMIDE
  318. LEFLUNOMIDE [Concomitant]
     Active Substance: LEFLUNOMIDE
  319. LEVOTHYROXINE SODIUM [Concomitant]
     Active Substance: LEVOTHYROXINE SODIUM
     Indication: Product used for unknown indication
  320. LISINOPRIL [Concomitant]
     Active Substance: LISINOPRIL
     Indication: Product used for unknown indication
  321. LORAZEPAM [Concomitant]
     Active Substance: LORAZEPAM
     Indication: Product used for unknown indication
  322. LORAZEPAM [Concomitant]
     Active Substance: LORAZEPAM
  323. MAGNESIUM [Concomitant]
     Active Substance: MAGNESIUM
     Indication: Product used for unknown indication
  324. MAGNESIUM [Concomitant]
     Active Substance: MAGNESIUM
  325. MAGNESIUM [Concomitant]
     Active Substance: MAGNESIUM
  326. MAGNESIUM [Concomitant]
     Active Substance: MAGNESIUM
  327. MELOXICAM [Concomitant]
     Active Substance: MELOXICAM
     Indication: Product used for unknown indication
  328. METHOTREXATE [Concomitant]
     Active Substance: METHOTREXATE
     Indication: Rheumatoid arthritis
  329. METHOTREXATE [Concomitant]
     Active Substance: METHOTREXATE
  330. METHOTREXATE [Concomitant]
     Active Substance: METHOTREXATE
  331. METHOTREXATE [Concomitant]
     Active Substance: METHOTREXATE
  332. METHOTREXATE [Concomitant]
     Active Substance: METHOTREXATE
  333. METHOTREXATE [Concomitant]
     Active Substance: METHOTREXATE
  334. METHOTREXATE [Concomitant]
     Active Substance: METHOTREXATE
  335. METHOTREXATE [Concomitant]
     Active Substance: METHOTREXATE
  336. METHOTREXATE [Concomitant]
     Active Substance: METHOTREXATE
  337. METHOTREXATE [Concomitant]
     Active Substance: METHOTREXATE
  338. METHOTREXATE [Concomitant]
     Active Substance: METHOTREXATE
  339. METHOTREXATE [Concomitant]
     Active Substance: METHOTREXATE
  340. METHOTREXATE [Concomitant]
     Active Substance: METHOTREXATE
  341. METHOTREXATE [Concomitant]
     Active Substance: METHOTREXATE
  342. METHOTREXATE [Concomitant]
     Active Substance: METHOTREXATE
  343. METHOTREXATE [Concomitant]
     Active Substance: METHOTREXATE
  344. METHOTREXATE [Concomitant]
     Active Substance: METHOTREXATE
  345. METHOTREXATE [Concomitant]
     Active Substance: METHOTREXATE
  346. METHOTREXATE [Concomitant]
     Active Substance: METHOTREXATE
  347. METHOTREXATE [Concomitant]
     Active Substance: METHOTREXATE
  348. METHOTREXATE [Concomitant]
     Active Substance: METHOTREXATE
  349. METHOTREXATE [Concomitant]
     Active Substance: METHOTREXATE
  350. METHOTREXATE [Concomitant]
     Active Substance: METHOTREXATE
  351. METHOTREXATE [Concomitant]
     Active Substance: METHOTREXATE
  352. METHOTREXATE [Concomitant]
     Active Substance: METHOTREXATE
  353. METHOTREXATE [Concomitant]
     Active Substance: METHOTREXATE
  354. METHOTREXATE [Concomitant]
     Active Substance: METHOTREXATE
  355. METHOTREXATE [Concomitant]
     Active Substance: METHOTREXATE
  356. METHOTREXATE [Concomitant]
     Active Substance: METHOTREXATE
     Dosage: SOLUTION INTRA- ARTERIAL
  357. METHOTREXATE [Concomitant]
     Active Substance: METHOTREXATE
  358. METHOTREXATE [Concomitant]
     Active Substance: METHOTREXATE
  359. METHOTREXATE [Concomitant]
     Active Substance: METHOTREXATE
  360. METHOTREXATE [Concomitant]
     Active Substance: METHOTREXATE
  361. METHOTREXATE [Concomitant]
     Active Substance: METHOTREXATE
  362. METHOTREXATE [Concomitant]
     Active Substance: METHOTREXATE
  363. METHOTREXATE [Concomitant]
     Active Substance: METHOTREXATE
  364. METHOTREXATE [Concomitant]
     Active Substance: METHOTREXATE
  365. MYCOPHENOLATE MOFETIL [Concomitant]
     Active Substance: MYCOPHENOLATE MOFETIL
     Indication: Rheumatoid arthritis
  366. NAPROXEN SODIUM [Concomitant]
     Active Substance: NAPROXEN SODIUM
     Indication: Rheumatoid arthritis
  367. NAPROXEN SODIUM [Concomitant]
     Active Substance: NAPROXEN SODIUM
     Indication: Headache
  368. NAPROXEN SODIUM [Concomitant]
     Active Substance: NAPROXEN SODIUM
  369. NAPROXEN SODIUM [Concomitant]
     Active Substance: NAPROXEN SODIUM
  370. NAPROXEN SODIUM [Concomitant]
     Active Substance: NAPROXEN SODIUM
  371. OXYCODONE [Concomitant]
     Active Substance: OXYCODONE
     Indication: Product used for unknown indication
  372. OXYCODONE HYDROCHLORIDE [Concomitant]
     Active Substance: OXYCODONE HYDROCHLORIDE
     Indication: Product used for unknown indication
  373. OXYCODONE HYDROCHLORIDE [Concomitant]
     Active Substance: OXYCODONE HYDROCHLORIDE
  374. OXYCODONE TEREPHTHALATE [Concomitant]
     Active Substance: OXYCODONE TEREPHTHALATE
     Indication: Product used for unknown indication
  375. OXYCODONE TEREPHTHALATE [Concomitant]
     Active Substance: OXYCODONE TEREPHTHALATE
  376. PANTOPRAZOLE [Concomitant]
     Active Substance: PANTOPRAZOLE
     Indication: Product used for unknown indication
  377. PANTOPRAZOLE SODIUM [Concomitant]
     Active Substance: PANTOPRAZOLE SODIUM
     Indication: Dyspepsia
  378. PANTOPRAZOLE SODIUM [Concomitant]
     Active Substance: PANTOPRAZOLE SODIUM
  379. PANTOPRAZOLE SODIUM [Concomitant]
     Active Substance: PANTOPRAZOLE SODIUM
  380. PERIOGARD [Concomitant]
     Active Substance: CHLORHEXIDINE GLUCONATE
     Indication: Product used for unknown indication
  381. PERIOGARD [Concomitant]
     Active Substance: CHLORHEXIDINE GLUCONATE
  382. PERIOGARD [Concomitant]
     Active Substance: CHLORHEXIDINE GLUCONATE
  383. PERIOGARD [Concomitant]
     Active Substance: CHLORHEXIDINE GLUCONATE
  384. PERIOGARD [Concomitant]
     Active Substance: CHLORHEXIDINE GLUCONATE
  385. PHTHALYLSULFATHIAZOLE [Concomitant]
     Active Substance: PHTHALYLSULFATHIAZOLE
     Indication: Rheumatoid arthritis
  386. PHTHALYLSULFATHIAZOLE [Concomitant]
     Active Substance: PHTHALYLSULFATHIAZOLE
  387. PHTHALYLSULFATHIAZOLE [Concomitant]
     Active Substance: PHTHALYLSULFATHIAZOLE
  388. PHTHALYLSULFATHIAZOLE [Concomitant]
     Active Substance: PHTHALYLSULFATHIAZOLE
  389. PHTHALYLSULFATHIAZOLE [Concomitant]
     Active Substance: PHTHALYLSULFATHIAZOLE
  390. PHTHALYLSULFATHIAZOLE [Concomitant]
     Active Substance: PHTHALYLSULFATHIAZOLE
  391. PHTHALYLSULFATHIAZOLE [Concomitant]
     Active Substance: PHTHALYLSULFATHIAZOLE
  392. PHTHALYLSULFATHIAZOLE [Concomitant]
     Active Substance: PHTHALYLSULFATHIAZOLE
  393. PHTHALYLSULFATHIAZOLE [Concomitant]
     Active Substance: PHTHALYLSULFATHIAZOLE
  394. PHTHALYLSULFATHIAZOLE [Concomitant]
     Active Substance: PHTHALYLSULFATHIAZOLE
  395. PIROXICAM [Concomitant]
     Active Substance: PIROXICAM
     Indication: Product used for unknown indication
  396. PREDNISOLONE [Concomitant]
     Active Substance: PREDNISOLONE
     Indication: Product used for unknown indication
  397. PREDNISONE [Concomitant]
     Active Substance: PREDNISONE
     Indication: Rheumatoid arthritis
  398. PREDNISONE [Concomitant]
     Active Substance: PREDNISONE
     Indication: Psoriatic arthropathy
  399. PREDNISONE [Concomitant]
     Active Substance: PREDNISONE
     Indication: Condition aggravated
  400. PREDNISONE [Concomitant]
     Active Substance: PREDNISONE
  401. PREDNISONE [Concomitant]
     Active Substance: PREDNISONE
  402. PREDNISONE [Concomitant]
     Active Substance: PREDNISONE
  403. PREDNISONE [Concomitant]
     Active Substance: PREDNISONE
  404. PREDNISONE [Concomitant]
     Active Substance: PREDNISONE
  405. PREDNISONE [Concomitant]
     Active Substance: PREDNISONE
  406. PREDNISONE [Concomitant]
     Active Substance: PREDNISONE
  407. PREDNISONE [Concomitant]
     Active Substance: PREDNISONE
  408. PREDNISONE [Concomitant]
     Active Substance: PREDNISONE
  409. PREGABALIN [Concomitant]
     Active Substance: PREGABALIN
     Indication: Product used for unknown indication
  410. PREGABALIN [Concomitant]
     Active Substance: PREGABALIN
  411. PSEUDOEPHEDRINE [Concomitant]
     Active Substance: PSEUDOEPHEDRINE
     Indication: Rheumatoid arthritis
  412. PSEUDOEPHEDRINE [Concomitant]
     Active Substance: PSEUDOEPHEDRINE
  413. PSEUDOEPHEDRINE HYDROCHLORIDE [Concomitant]
     Active Substance: PSEUDOEPHEDRINE HYDROCHLORIDE
     Indication: Rheumatoid arthritis
  414. PSEUDOEPHEDRINE HYDROCHLORIDE [Concomitant]
     Active Substance: PSEUDOEPHEDRINE HYDROCHLORIDE
  415. PSEUDOEPHEDRINE HYDROCHLORIDE [Concomitant]
     Active Substance: PSEUDOEPHEDRINE HYDROCHLORIDE
  416. QUETIAPINE [Concomitant]
     Active Substance: QUETIAPINE
     Indication: Product used for unknown indication
  417. QUETIAPINE FUMARATE [Concomitant]
     Active Substance: QUETIAPINE FUMARATE
     Indication: Product used for unknown indication
  418. RAMIPRIL [Concomitant]
     Active Substance: RAMIPRIL
     Indication: Rheumatoid arthritis
  419. RAMIPRIL [Concomitant]
     Active Substance: RAMIPRIL
  420. RAMIPRIL [Concomitant]
     Active Substance: RAMIPRIL
  421. RAMIPRIL [Concomitant]
     Active Substance: RAMIPRIL
  422. REMICADE [Concomitant]
     Active Substance: INFLIXIMAB
     Indication: Rheumatoid arthritis
  423. REMICADE [Concomitant]
     Active Substance: INFLIXIMAB
     Indication: Psoriasis
  424. REMICADE [Concomitant]
     Active Substance: INFLIXIMAB
     Indication: Crohn^s disease
  425. REMICADE [Concomitant]
     Active Substance: INFLIXIMAB
     Indication: Colitis ulcerative
     Dosage: POWDER FOR SOLUTION INTRAVENOUS
  426. REMICADE [Concomitant]
     Active Substance: INFLIXIMAB
     Indication: Arthropathy
  427. REMICADE [Concomitant]
     Active Substance: INFLIXIMAB
     Indication: Ankylosing spondylitis
  428. RISEDRONATE SODIUM [Concomitant]
     Active Substance: RISEDRONATE SODIUM
     Indication: Product used for unknown indication
  429. RITUXIMAB [Concomitant]
     Active Substance: RITUXIMAB
     Indication: Rheumatoid arthritis
  430. RITUXIMAB [Concomitant]
     Active Substance: RITUXIMAB
     Indication: Abdominal discomfort
  431. RITUXIMAB [Concomitant]
     Active Substance: RITUXIMAB
  432. RITUXIMAB [Concomitant]
     Active Substance: RITUXIMAB
  433. RITUXIMAB [Concomitant]
     Active Substance: RITUXIMAB
  434. RITUXIMAB [Concomitant]
     Active Substance: RITUXIMAB
  435. RITUXIMAB [Concomitant]
     Active Substance: RITUXIMAB
  436. RITUXIMAB [Concomitant]
     Active Substance: RITUXIMAB
  437. RITUXIMAB [Concomitant]
     Active Substance: RITUXIMAB
  438. RITUXIMAB [Concomitant]
     Active Substance: RITUXIMAB
  439. RITUXIMAB [Concomitant]
     Active Substance: RITUXIMAB
  440. RITUXIMAB [Concomitant]
     Active Substance: RITUXIMAB
  441. RITUXIMAB [Concomitant]
     Active Substance: RITUXIMAB
  442. RITUXIMAB [Concomitant]
     Active Substance: RITUXIMAB
  443. RITUXIMAB [Concomitant]
     Active Substance: RITUXIMAB
  444. RITUXIMAB [Concomitant]
     Active Substance: RITUXIMAB
  445. RITUXIMAB [Concomitant]
     Active Substance: RITUXIMAB
  446. RITUXIMAB [Concomitant]
     Active Substance: RITUXIMAB
  447. RITUXIMAB [Concomitant]
     Active Substance: RITUXIMAB
  448. RITUXIMAB [Concomitant]
     Active Substance: RITUXIMAB
  449. RITUXIMAB [Concomitant]
     Active Substance: RITUXIMAB
  450. RITUXIMAB [Concomitant]
     Active Substance: RITUXIMAB
  451. FISH OIL [Concomitant]
     Active Substance: FISH OIL
     Indication: Product used for unknown indication
  452. FISH OIL [Concomitant]
     Active Substance: FISH OIL
  453. SIMPONI [Concomitant]
     Active Substance: GOLIMUMAB
     Indication: Rheumatoid arthritis
     Dosage: SOLUTION SUBCUTANEOUS
  454. SIMPONI [Concomitant]
     Active Substance: GOLIMUMAB
     Indication: Psoriatic arthropathy
     Dosage: SOLUTION SUBCUTANEOUS
  455. SIMPONI [Concomitant]
     Active Substance: GOLIMUMAB
     Indication: Prostatic specific antigen
     Dosage: SOLUTION SUBCUTANEOUS
  456. SIMPONI [Concomitant]
     Active Substance: GOLIMUMAB
     Dosage: SOLUTION SUBCUTANEOUS
  457. SIMPONI [Concomitant]
     Active Substance: GOLIMUMAB
     Dosage: SOLUTION SUBCUTANEOUS
  458. SIMPONI [Concomitant]
     Active Substance: GOLIMUMAB
     Dosage: SOLUTION SUBCUTANEOUS
  459. SIMPONI [Concomitant]
     Active Substance: GOLIMUMAB
     Dosage: SOLUTION SUBCUTANEOUS
  460. SIMPONI [Concomitant]
     Active Substance: GOLIMUMAB
  461. SIMPONI [Concomitant]
     Active Substance: GOLIMUMAB
     Dosage: SOLUTION SUBCUTANEOUS
  462. STELARA [Concomitant]
     Active Substance: USTEKINUMAB
     Indication: Psoriatic arthropathy
  463. STELARA [Concomitant]
     Active Substance: USTEKINUMAB
     Indication: Rheumatoid arthritis
     Dosage: SOLUTION SUBCUTANEOUS
  464. STELARA [Concomitant]
     Active Substance: USTEKINUMAB
  465. STELARA [Concomitant]
     Active Substance: USTEKINUMAB
  466. STELARA [Concomitant]
     Active Substance: USTEKINUMAB
     Dosage: SOLUTION SUBCUTANEOUS
  467. STELARA [Concomitant]
     Active Substance: USTEKINUMAB
  468. STELARA [Concomitant]
     Active Substance: USTEKINUMAB
  469. STELARA [Concomitant]
     Active Substance: USTEKINUMAB
     Dosage: SOLUTION SUBCUTANEOUS
  470. SULFASALAZINE [Concomitant]
     Active Substance: SULFASALAZINE
     Indication: Rheumatoid arthritis
  471. SULFASALAZINE [Concomitant]
     Active Substance: SULFASALAZINE
  472. SULFASALAZINE [Concomitant]
     Active Substance: SULFASALAZINE
  473. SULFASALAZINE [Concomitant]
     Active Substance: SULFASALAZINE
  474. SULFASALAZINE [Concomitant]
     Active Substance: SULFASALAZINE
  475. SULFASALAZINE [Concomitant]
     Active Substance: SULFASALAZINE
  476. SULFASALAZINE [Concomitant]
     Active Substance: SULFASALAZINE
  477. SULFASALAZINE [Concomitant]
     Active Substance: SULFASALAZINE
  478. SULFASALAZINE [Concomitant]
     Active Substance: SULFASALAZINE
  479. SULFASALAZINE [Concomitant]
     Active Substance: SULFASALAZINE
  480. SULFASALAZINE [Concomitant]
     Active Substance: SULFASALAZINE
  481. SULFASALAZINE [Concomitant]
     Active Substance: SULFASALAZINE
  482. SULFASALAZINE [Concomitant]
     Active Substance: SULFASALAZINE
  483. SULFASALAZINE [Concomitant]
     Active Substance: SULFASALAZINE
  484. SULFASALAZINE [Concomitant]
     Active Substance: SULFASALAZINE
  485. SULFASALAZINE [Concomitant]
     Active Substance: SULFASALAZINE
  486. SULFASALAZINE [Concomitant]
     Active Substance: SULFASALAZINE
  487. SULFASALAZINE [Concomitant]
     Active Substance: SULFASALAZINE
  488. SULFASALAZINE [Concomitant]
     Active Substance: SULFASALAZINE
  489. SULFASALAZINE [Concomitant]
     Active Substance: SULFASALAZINE
  490. SULFASALAZINE [Concomitant]
     Active Substance: SULFASALAZINE
  491. SULFASALAZINE [Concomitant]
     Active Substance: SULFASALAZINE
  492. SULFASALAZINE [Concomitant]
     Active Substance: SULFASALAZINE
  493. SULFASALAZINE [Concomitant]
     Active Substance: SULFASALAZINE
  494. SULFASALAZINE [Concomitant]
     Active Substance: SULFASALAZINE
  495. SULFASALAZINE [Concomitant]
     Active Substance: SULFASALAZINE
  496. TOCILIZUMAB [Concomitant]
     Active Substance: TOCILIZUMAB
     Indication: Rheumatoid arthritis
  497. TOCILIZUMAB [Concomitant]
     Active Substance: TOCILIZUMAB
  498. TOCILIZUMAB [Concomitant]
     Active Substance: TOCILIZUMAB
  499. TOCILIZUMAB [Concomitant]
     Active Substance: TOCILIZUMAB
  500. TOCILIZUMAB [Concomitant]
     Active Substance: TOCILIZUMAB
  501. TOCILIZUMAB [Concomitant]
     Active Substance: TOCILIZUMAB
  502. TOCILIZUMAB [Concomitant]
     Active Substance: TOCILIZUMAB
  503. TOCILIZUMAB [Concomitant]
     Active Substance: TOCILIZUMAB
  504. TOCILIZUMAB [Concomitant]
     Active Substance: TOCILIZUMAB
  505. TOCILIZUMAB [Concomitant]
     Active Substance: TOCILIZUMAB
  506. TOCILIZUMAB [Concomitant]
     Active Substance: TOCILIZUMAB
  507. TOCILIZUMAB [Concomitant]
     Active Substance: TOCILIZUMAB
  508. TOFACITINIB [Concomitant]
     Active Substance: TOFACITINIB
     Indication: Rheumatoid arthritis
  509. TOFACITINIB CITRATE [Concomitant]
     Active Substance: TOFACITINIB CITRATE
     Indication: Product used for unknown indication
  510. TOFACITINIB CITRATE [Concomitant]
     Active Substance: TOFACITINIB CITRATE
  511. TOFACITINIB CITRATE [Concomitant]
     Active Substance: TOFACITINIB CITRATE
  512. TOFACITINIB CITRATE [Concomitant]
     Active Substance: TOFACITINIB CITRATE
  513. TOFACITINIB CITRATE [Concomitant]
     Active Substance: TOFACITINIB CITRATE
  514. TOFACITINIB CITRATE [Concomitant]
     Active Substance: TOFACITINIB CITRATE
  515. TOFACITINIB CITRATE [Concomitant]
     Active Substance: TOFACITINIB CITRATE
  516. TYLENOL [Concomitant]
     Active Substance: ACETAMINOPHEN
     Indication: Product used for unknown indication
  517. VITAMIN C [Concomitant]
     Active Substance: ASCORBIC ACID
     Indication: Product used for unknown indication
  518. VITAMIN C [Concomitant]
     Active Substance: ASCORBIC ACID
  519. VITAMIN C [Concomitant]
     Active Substance: ASCORBIC ACID
  520. VITAMIN D3 [Concomitant]
     Active Substance: CHOLECALCIFEROL
     Indication: Product used for unknown indication
  521. VITAMIN D3 [Concomitant]
     Active Substance: CHOLECALCIFEROL
  522. CHLORAPREP [Concomitant]
     Active Substance: CHLORHEXIDINE GLUCONATE\ISOPROPYL ALCOHOL
     Indication: Rheumatoid arthritis
  523. CHLORAPREP [Concomitant]
     Active Substance: CHLORHEXIDINE GLUCONATE\ISOPROPYL ALCOHOL
  524. CHLORAPREP [Concomitant]
     Active Substance: CHLORHEXIDINE GLUCONATE\ISOPROPYL ALCOHOL
  525. DOXYCYCLINE [Concomitant]
     Active Substance: DOXYCYCLINE
     Indication: Product used for unknown indication
  526. CELECOXIB [Concomitant]
     Active Substance: CELECOXIB
     Indication: Arthritis
  527. CELECOXIB [Concomitant]
     Active Substance: CELECOXIB
  528. CELECOXIB [Concomitant]
     Active Substance: CELECOXIB
  529. CELECOXIB [Concomitant]
     Active Substance: CELECOXIB
  530. CELECOXIB [Concomitant]
     Active Substance: CELECOXIB
  531. CELECOXIB [Concomitant]
     Active Substance: CELECOXIB
  532. CELECOXIB [Concomitant]
     Active Substance: CELECOXIB
  533. CELECOXIB [Concomitant]
     Active Substance: CELECOXIB
  534. CELECOXIB [Concomitant]
     Active Substance: CELECOXIB
  535. FLUMETHASONE PIVALATE [Concomitant]
     Active Substance: FLUMETHASONE PIVALATE
     Indication: Rheumatoid arthritis
  536. FLUMETHASONE PIVALATE [Concomitant]
     Active Substance: FLUMETHASONE PIVALATE
  537. FLUMETHASONE PIVALATE [Concomitant]
     Active Substance: FLUMETHASONE PIVALATE
  538. INFLIXIMAB [Concomitant]
     Active Substance: INFLIXIMAB
     Indication: Rheumatoid arthritis
  539. INFLIXIMAB [Concomitant]
     Active Substance: INFLIXIMAB
     Indication: Psoriatic arthropathy
  540. INFLIXIMAB [Concomitant]
     Active Substance: INFLIXIMAB
     Indication: Colitis ulcerative
  541. INFLIXIMAB [Concomitant]
     Active Substance: INFLIXIMAB
  542. INFLIXIMAB [Concomitant]
     Active Substance: INFLIXIMAB
  543. INFLIXIMAB [Concomitant]
     Active Substance: INFLIXIMAB
  544. INFLIXIMAB [Concomitant]
     Active Substance: INFLIXIMAB
  545. INFLIXIMAB [Concomitant]
     Active Substance: INFLIXIMAB
  546. INFLIXIMAB [Concomitant]
     Active Substance: INFLIXIMAB
  547. INFLIXIMAB [Concomitant]
     Active Substance: INFLIXIMAB
  548. ISOPROPYL ALCOHOL [Concomitant]
     Active Substance: ISOPROPYL ALCOHOL
     Indication: Rheumatoid arthritis
  549. ISOPROPYL ALCOHOL [Concomitant]
     Active Substance: ISOPROPYL ALCOHOL
     Dosage: LIQUID TOPICAL
  550. ISOPROPYL ALCOHOL [Concomitant]
     Active Substance: ISOPROPYL ALCOHOL
  551. OTEZLA [Concomitant]
     Active Substance: APREMILAST
     Indication: Rheumatoid arthritis
  552. OTEZLA [Concomitant]
     Active Substance: APREMILAST
     Indication: Psoriasis
  553. OTEZLA [Concomitant]
     Active Substance: APREMILAST
  554. OTEZLA [Concomitant]
     Active Substance: APREMILAST
  555. OTEZLA [Concomitant]
     Active Substance: APREMILAST
  556. OTEZLA [Concomitant]
     Active Substance: APREMILAST
  557. OTEZLA [Concomitant]
     Active Substance: APREMILAST
  558. HYDROCORTISONE SODIUM SUCCINATE [Concomitant]
     Active Substance: HYDROCORTISONE SODIUM SUCCINATE
     Indication: Rheumatoid arthritis
  559. HYDROCORTISONE SODIUM SUCCINATE [Concomitant]
     Active Substance: HYDROCORTISONE SODIUM SUCCINATE
  560. HYDROCORTISONE SODIUM SUCCINATE [Concomitant]
     Active Substance: HYDROCORTISONE SODIUM SUCCINATE
  561. HYDROCORTISONE SODIUM SUCCINATE [Concomitant]
     Active Substance: HYDROCORTISONE SODIUM SUCCINATE
  562. CETIRIZINE HYDROCHLORIDE\PSEUDOEPHEDRINE HYDROCHLORIDE [Concomitant]
     Active Substance: CETIRIZINE HYDROCHLORIDE\PSEUDOEPHEDRINE HYDROCHLORIDE
     Indication: Rheumatoid arthritis
  563. CETIRIZINE HYDROCHLORIDE\PSEUDOEPHEDRINE HYDROCHLORIDE [Concomitant]
     Active Substance: CETIRIZINE HYDROCHLORIDE\PSEUDOEPHEDRINE HYDROCHLORIDE
  564. CETIRIZINE HYDROCHLORIDE\PSEUDOEPHEDRINE HYDROCHLORIDE [Concomitant]
     Active Substance: CETIRIZINE HYDROCHLORIDE\PSEUDOEPHEDRINE HYDROCHLORIDE
     Dosage: EXTENDED- RELEASE
  565. CETIRIZINE HYDROCHLORIDE\PSEUDOEPHEDRINE HYDROCHLORIDE [Concomitant]
     Active Substance: CETIRIZINE HYDROCHLORIDE\PSEUDOEPHEDRINE HYDROCHLORIDE
  566. CETIRIZINE HYDROCHLORIDE\PSEUDOEPHEDRINE HYDROCHLORIDE [Concomitant]
     Active Substance: CETIRIZINE HYDROCHLORIDE\PSEUDOEPHEDRINE HYDROCHLORIDE
  567. CETIRIZINE HYDROCHLORIDE\PSEUDOEPHEDRINE HYDROCHLORIDE [Concomitant]
     Active Substance: CETIRIZINE HYDROCHLORIDE\PSEUDOEPHEDRINE HYDROCHLORIDE
  568. CETIRIZINE HYDROCHLORIDE\PSEUDOEPHEDRINE HYDROCHLORIDE [Concomitant]
     Active Substance: CETIRIZINE HYDROCHLORIDE\PSEUDOEPHEDRINE HYDROCHLORIDE
     Dosage: TABLET (EXTENDED- RELEASE
  569. CETIRIZINE HYDROCHLORIDE\PSEUDOEPHEDRINE HYDROCHLORIDE [Concomitant]
     Active Substance: CETIRIZINE HYDROCHLORIDE\PSEUDOEPHEDRINE HYDROCHLORIDE
  570. CETIRIZINE HYDROCHLORIDE [Concomitant]
     Active Substance: CETIRIZINE HYDROCHLORIDE
     Indication: Rheumatoid arthritis
  571. CETIRIZINE HYDROCHLORIDE [Concomitant]
     Active Substance: CETIRIZINE HYDROCHLORIDE
  572. CETIRIZINE HYDROCHLORIDE [Concomitant]
     Active Substance: CETIRIZINE HYDROCHLORIDE
  573. CETIRIZINE HYDROCHLORIDE [Concomitant]
     Active Substance: CETIRIZINE HYDROCHLORIDE
  574. CETIRIZINE HYDROCHLORIDE [Concomitant]
     Active Substance: CETIRIZINE HYDROCHLORIDE
  575. CETIRIZINE HYDROCHLORIDE [Concomitant]
     Active Substance: CETIRIZINE HYDROCHLORIDE
  576. SULFASALAZINE [Concomitant]
     Active Substance: SULFASALAZINE
     Indication: Rheumatoid arthritis
  577. SULFASALAZINE [Concomitant]
     Active Substance: SULFASALAZINE
  578. SULFASALAZINE [Concomitant]
     Active Substance: SULFASALAZINE
  579. SULFASALAZINE [Concomitant]
     Active Substance: SULFASALAZINE
  580. SULFASALAZINE [Concomitant]
     Active Substance: SULFASALAZINE
  581. SULFASALAZINE [Concomitant]
     Active Substance: SULFASALAZINE
  582. SULFAMETHOXAZOLE [Concomitant]
     Active Substance: SULFAMETHOXAZOLE
     Indication: Product used for unknown indication
  583. SULFAMETHOXAZOLE\TRIMETHOPRIM [Concomitant]
     Active Substance: SULFAMETHOXAZOLE\TRIMETHOPRIM
     Indication: Product used for unknown indication
  584. CHLORHEXIDINE GLUCONATE\ISOPROPYL ALCOHOL [Concomitant]
     Active Substance: CHLORHEXIDINE GLUCONATE\ISOPROPYL ALCOHOL
     Indication: Product used for unknown indication
  585. CHLORHEXIDINE GLUCONATE\ISOPROPYL ALCOHOL [Concomitant]
     Active Substance: CHLORHEXIDINE GLUCONATE\ISOPROPYL ALCOHOL
  586. CHLORHEXIDINE GLUCONATE\ISOPROPYL ALCOHOL [Concomitant]
     Active Substance: CHLORHEXIDINE GLUCONATE\ISOPROPYL ALCOHOL
  587. CHOLECALCIFEROL [Concomitant]
     Active Substance: CHOLECALCIFEROL
     Indication: Rheumatoid arthritis
  588. CHOLECALCIFEROL [Concomitant]
     Active Substance: CHOLECALCIFEROL
  589. CHOLECALCIFEROL [Concomitant]
     Active Substance: CHOLECALCIFEROL
  590. FOSAMAX [Concomitant]
     Active Substance: ALENDRONATE SODIUM
     Indication: Product used for unknown indication
  591. FLUMETHASONE PIVALATE [Concomitant]
     Active Substance: FLUMETHASONE PIVALATE
     Indication: Rheumatoid arthritis
  592. LYRICA [Concomitant]
     Active Substance: PREGABALIN
     Indication: Product used for unknown indication
  593. NAPROXEN [Concomitant]
     Active Substance: NAPROXEN
     Indication: Rheumatoid arthritis
  594. NEOMYCIN [Concomitant]
     Active Substance: NEOMYCIN
     Indication: Product used for unknown indication
  595. TRAMADOL HYDROCHLORIDE [Concomitant]
     Active Substance: TRAMADOL HYDROCHLORIDE
     Indication: Migraine
  596. TRAMADOL HYDROCHLORIDE [Concomitant]
     Active Substance: TRAMADOL HYDROCHLORIDE
     Dosage: SUSPENSION INTRA- ARTICULAR
  597. TRIAMCINOLONE ACETONIDE [Concomitant]
     Active Substance: TRIAMCINOLONE ACETONIDE
     Indication: Rheumatoid arthritis
  598. TRIAMCINOLONE ACETONIDE [Concomitant]
     Active Substance: TRIAMCINOLONE ACETONIDE
     Dosage: SUSPENSION INTRA- ARTICULAR
  599. DICLOFENAC DIETHYLAMINE [Concomitant]
     Active Substance: DICLOFENAC DIETHYLAMINE
     Indication: Product used for unknown indication
  600. DICLOFENAC DIETHYLAMINE [Concomitant]
     Active Substance: DICLOFENAC DIETHYLAMINE
  601. PREDNISONE [Concomitant]
     Active Substance: PREDNISONE
     Indication: Rheumatoid arthritis
  602. PREDNISONE [Concomitant]
     Active Substance: PREDNISONE
  603. XELJANZ [Concomitant]
     Active Substance: TOFACITINIB CITRATE
     Indication: Rheumatoid arthritis
  604. XELJANZ [Concomitant]
     Active Substance: TOFACITINIB CITRATE
     Indication: Psoriatic arthropathy
  605. XELJANZ [Concomitant]
     Active Substance: TOFACITINIB CITRATE
  606. XELJANZ [Concomitant]
     Active Substance: TOFACITINIB CITRATE
  607. XELJANZ [Concomitant]
     Active Substance: TOFACITINIB CITRATE
  608. XELJANZ [Concomitant]
     Active Substance: TOFACITINIB CITRATE
  609. XELJANZ [Concomitant]
     Active Substance: TOFACITINIB CITRATE
  610. ALENDRONATE SODIUM [Concomitant]
     Active Substance: ALENDRONATE SODIUM
     Indication: Rheumatoid arthritis
  611. ALENDRONATE SODIUM [Concomitant]
     Active Substance: ALENDRONATE SODIUM
  612. ALENDRONATE SODIUM [Concomitant]
     Active Substance: ALENDRONATE SODIUM
  613. ALENDRONATE SODIUM [Concomitant]
     Active Substance: ALENDRONATE SODIUM
  614. ASCORBIC ACID [Concomitant]
     Active Substance: ASCORBIC ACID
     Indication: Product used for unknown indication
  615. CALCIUM CARBONATE\CALCIUM GLUCONATE [Concomitant]
     Active Substance: CALCIUM CARBONATE\CALCIUM GLUCONATE
     Indication: Product used for unknown indication
  616. CALCIUM GLUBIONATE [Concomitant]
     Active Substance: CALCIUM GLUBIONATE
     Indication: Product used for unknown indication
  617. GETACATETIDE ACETATE [Concomitant]
     Active Substance: GETACATETIDE ACETATE
     Indication: Product used for unknown indication
  618. DICLOFENAC [Concomitant]
     Active Substance: DICLOFENAC
     Indication: Product used for unknown indication
  619. DICLOFENAC [Concomitant]
     Active Substance: DICLOFENAC
  620. DICLOFENAC [Concomitant]
     Active Substance: DICLOFENAC
  621. ETANERCEPT [Concomitant]
     Active Substance: ETANERCEPT
     Indication: Rheumatoid arthritis
  622. ETANERCEPT [Concomitant]
     Active Substance: ETANERCEPT
  623. ETANERCEPT [Concomitant]
     Active Substance: ETANERCEPT
  624. ETANERCEPT [Concomitant]
     Active Substance: ETANERCEPT
  625. ETANERCEPT [Concomitant]
     Active Substance: ETANERCEPT
  626. ETANERCEPT [Concomitant]
     Active Substance: ETANERCEPT
  627. ETANERCEPT [Concomitant]
     Active Substance: ETANERCEPT
  628. ETANERCEPT [Concomitant]
     Active Substance: ETANERCEPT
  629. HYDROCORTISONE ACETATE [Concomitant]
     Active Substance: HYDROCORTISONE ACETATE
     Indication: Rheumatoid arthritis
  630. HYDROCORTISONE ACETATE [Concomitant]
     Active Substance: HYDROCORTISONE ACETATE
  631. HYDROCORTISONE ACETATE [Concomitant]
     Active Substance: HYDROCORTISONE ACETATE
  632. OXYCODONE AND ACETAMINOPHEN [Concomitant]
     Active Substance: ACETAMINOPHEN\OXYCODONE HYDROCHLORIDE
     Indication: Product used for unknown indication
  633. ZOPICLONE [Concomitant]
     Active Substance: ZOPICLONE
     Indication: Product used for unknown indication
  634. ACETAMINOPHEN AND CODEINE [Concomitant]
     Active Substance: ACETAMINOPHEN\CODEINE PHOSPHATE
     Indication: Product used for unknown indication
  635. ALENDRONATE SODIUM\CHOLECALCIFEROL [Concomitant]
     Active Substance: ALENDRONATE SODIUM\CHOLECALCIFEROL
     Indication: Rheumatoid arthritis
  636. DICLOFENAC SODIUM [Concomitant]
     Active Substance: DICLOFENAC SODIUM
     Indication: Product used for unknown indication
  637. DICLOFENAC SODIUM [Concomitant]
     Active Substance: DICLOFENAC SODIUM
  638. APREPITANT [Concomitant]
     Active Substance: APREPITANT
     Indication: Product used for unknown indication
  639. KEVZARA [Concomitant]
     Active Substance: SARILUMAB
     Indication: Rheumatoid arthritis
  640. TRIMIPRAMINE [Concomitant]
     Active Substance: TRIMIPRAMINE
     Indication: Product used for unknown indication
  641. USTEKINUMAB [Concomitant]
     Active Substance: USTEKINUMAB
     Indication: Rheumatoid arthritis
  642. USTEKINUMAB [Concomitant]
     Active Substance: USTEKINUMAB
     Indication: Psoriatic arthropathy
  643. USTEKINUMAB [Concomitant]
     Active Substance: USTEKINUMAB
  644. USTEKINUMAB [Concomitant]
     Active Substance: USTEKINUMAB
  645. USTEKINUMAB [Concomitant]
     Active Substance: USTEKINUMAB
  646. MARVELON [Concomitant]
     Active Substance: DESOGESTREL\ETHINYL ESTRADIOL
     Indication: Product used for unknown indication
  647. ACETAMINOPHEN\CAFFEINE\CODEINE PHOSPHATE [Concomitant]
     Active Substance: ACETAMINOPHEN\CAFFEINE\CODEINE PHOSPHATE
     Indication: Product used for unknown indication
  648. PANTOPRAZOLE SODIUM [Concomitant]
     Active Substance: PANTOPRAZOLE SODIUM
     Indication: Product used for unknown indication
  649. HYDROXYCHLOROQUINE DIPHOSPHATE [Concomitant]
     Active Substance: HYDROXYCHLOROQUINE DIPHOSPHATE
     Indication: Rheumatoid arthritis
  650. HYDROXYCHLOROQUINE DIPHOSPHATE [Concomitant]
     Active Substance: HYDROXYCHLOROQUINE DIPHOSPHATE
  651. HYDROXYCHLOROQUINE DIPHOSPHATE [Concomitant]
     Active Substance: HYDROXYCHLOROQUINE DIPHOSPHATE
  652. HYDROXYCHLOROQUINE DIPHOSPHATE [Concomitant]
     Active Substance: HYDROXYCHLOROQUINE DIPHOSPHATE
  653. HYDROXYCHLOROQUINE DIPHOSPHATE [Concomitant]
     Active Substance: HYDROXYCHLOROQUINE DIPHOSPHATE
  654. TYLENOL WITH CODEINE [Concomitant]
     Active Substance: ACETAMINOPHEN\CODEINE PHOSPHATE
     Indication: Product used for unknown indication
  655. TYLENOL WITH CODEINE [Concomitant]
     Active Substance: ACETAMINOPHEN\CODEINE PHOSPHATE
  656. AIMOVIG [Concomitant]
     Active Substance: ERENUMAB-AOOE
     Indication: Migraine
  657. AIMOVIG [Concomitant]
     Active Substance: ERENUMAB-AOOE
  658. ATOMOXETINE [Concomitant]
     Active Substance: ATOMOXETINE
     Indication: Migraine
  659. ATOMOXETINE HYDROCHLORIDE [Concomitant]
     Active Substance: ATOMOXETINE HYDROCHLORIDE
     Indication: Migraine
  660. BOTULINUM TOXIN TYPE A [Concomitant]
     Active Substance: BOTULINUM TOXIN TYPE A
     Indication: Product used for unknown indication
     Dosage: POWDER FOR SOLUTION
  661. BUTRANS [Concomitant]
     Active Substance: BUPRENORPHINE
     Indication: Product used for unknown indication
     Dosage: PATCH
  662. CANDESARTAN [Concomitant]
     Active Substance: CANDESARTAN
     Indication: Migraine
  663. CANDESARTAN [Concomitant]
     Active Substance: CANDESARTAN
  664. DOMPERIDONE MALEATE [Concomitant]
     Active Substance: DOMPERIDONE MALEATE
     Indication: Product used for unknown indication
  665. DOMPERIDONE MALEATE [Concomitant]
     Active Substance: DOMPERIDONE MALEATE
  666. DOMPERIDONE MALEATE [Concomitant]
     Active Substance: DOMPERIDONE MALEATE
  667. ERENUMAB [Concomitant]
     Active Substance: ERENUMAB
     Indication: Migraine
  668. FLUMETHASONE [Concomitant]
     Active Substance: FLUMETHASONE
     Indication: Product used for unknown indication
  669. GOLD [Concomitant]
     Active Substance: GOLD
     Indication: Product used for unknown indication
  670. HYDROCORTISONE [Concomitant]
     Active Substance: HYDROCORTISONE
     Indication: Rheumatoid arthritis
  671. HYDROCORTISONE [Concomitant]
     Active Substance: HYDROCORTISONE
  672. HYDROCORTISONE [Concomitant]
     Active Substance: HYDROCORTISONE
  673. HYDROCORTISONE [Concomitant]
     Active Substance: HYDROCORTISONE
  674. HYDROCORTISONE [Concomitant]
     Active Substance: HYDROCORTISONE
  675. HYDROCORTISONE [Concomitant]
     Active Substance: HYDROCORTISONE
  676. LAMICTAL [Concomitant]
     Active Substance: LAMOTRIGINE
     Indication: Product used for unknown indication
  677. MEGLUMINE [Concomitant]
     Active Substance: MEGLUMINE
     Indication: Migraine
  678. METHYLPREDNISOLONE SODIUM SUCCINATE [Concomitant]
     Active Substance: METHYLPREDNISOLONE SODIUM SUCCINATE
     Indication: Product used for unknown indication
  679. MYRBETRIQ [Concomitant]
     Active Substance: MIRABEGRON
     Indication: Product used for unknown indication
  680. NUCALA [Concomitant]
     Active Substance: MEPOLIZUMAB
     Indication: Product used for unknown indication
  681. OXYQUINOLINE SULFATE [Concomitant]
     Active Substance: OXYQUINOLINE SULFATE
     Indication: Product used for unknown indication
  682. OXYQUINOLINE SULFATE [Concomitant]
     Active Substance: OXYQUINOLINE SULFATE
  683. OXYQUINOLINE SULFATE [Concomitant]
     Active Substance: OXYQUINOLINE SULFATE
  684. PHENYLEPHRINE HYDROCHLORIDE [Concomitant]
     Active Substance: PHENYLEPHRINE HYDROCHLORIDE
     Indication: Rheumatoid arthritis
  685. PHENYLEPHRINE HYDROCHLORIDE [Concomitant]
     Active Substance: PHENYLEPHRINE HYDROCHLORIDE
  686. PHENYLEPHRINE HYDROCHLORIDE [Concomitant]
     Active Substance: PHENYLEPHRINE HYDROCHLORIDE
  687. PHENYLEPHRINE HYDROCHLORIDE [Concomitant]
     Active Substance: PHENYLEPHRINE HYDROCHLORIDE
  688. RANITIDINE HYDROCHLORIDE [Concomitant]
     Active Substance: RANITIDINE HYDROCHLORIDE
     Indication: Rheumatoid arthritis
  689. DIETARY SUPPLEMENT\HERBALS [Concomitant]
     Active Substance: DIETARY SUPPLEMENT\HERBALS
     Indication: Product used for unknown indication
  690. GOLD SODIUM THIOMALATE [Concomitant]
     Active Substance: GOLD SODIUM THIOMALATE
     Indication: Product used for unknown indication
  691. GOLD SODIUM THIOMALATE [Concomitant]
     Active Substance: GOLD SODIUM THIOMALATE
  692. TOPAMAX [Concomitant]
     Active Substance: TOPIRAMATE
     Indication: Product used for unknown indication
  693. TOPAMAX [Concomitant]
     Active Substance: TOPIRAMATE
  694. TOPAMAX [Concomitant]
     Active Substance: TOPIRAMATE
  695. TOPAMAX [Concomitant]
     Active Substance: TOPIRAMATE
  696. TOPAMAX [Concomitant]
     Active Substance: TOPIRAMATE
  697. TOPIRAMATE [Concomitant]
     Active Substance: TOPIRAMATE
     Indication: Migraine
  698. TOPIRAMATE [Concomitant]
     Active Substance: TOPIRAMATE
  699. TOPIRAMATE [Concomitant]
     Active Substance: TOPIRAMATE
  700. TOPIRAMATE [Concomitant]
     Active Substance: TOPIRAMATE
  701. ACETAMINOPHEN\OXYCODONE HYDROCHLORIDE [Concomitant]
     Active Substance: ACETAMINOPHEN\OXYCODONE HYDROCHLORIDE
     Indication: Product used for unknown indication
  702. ACETAMINOPHEN\OXYCODONE HYDROCHLORIDE [Concomitant]
     Active Substance: ACETAMINOPHEN\OXYCODONE HYDROCHLORIDE
  703. UNSPECIFIED INGREDIENT [Concomitant]
     Active Substance: UNSPECIFIED INGREDIENT
     Indication: Product used for unknown indication
  704. PANTOPRAZOLE SODIUM ANHYDROUS [Concomitant]
     Active Substance: PANTOPRAZOLE SODIUM ANHYDROUS
     Indication: Product used for unknown indication
  705. PANTOPRAZOLE SODIUM ANHYDROUS [Concomitant]
     Active Substance: PANTOPRAZOLE SODIUM ANHYDROUS
  706. PANTOPRAZOLE SODIUM ANHYDROUS [Concomitant]
     Active Substance: PANTOPRAZOLE SODIUM ANHYDROUS
  707. AZATHIOPRINE [Concomitant]
     Active Substance: AZATHIOPRINE
     Indication: Rheumatoid arthritis
  708. AZATHIOPRINE [Concomitant]
     Active Substance: AZATHIOPRINE
  709. CLONIDINE HYDROCHLORIDE [Concomitant]
     Active Substance: CLONIDINE HYDROCHLORIDE
     Indication: Product used for unknown indication
  710. DILTIAZEM HYDROCHLORIDE [Concomitant]
     Active Substance: DILTIAZEM HYDROCHLORIDE
     Indication: Product used for unknown indication
  711. ENTYVIO [Concomitant]
     Active Substance: VEDOLIZUMAB
     Indication: Product used for unknown indication
  712. FRAMYCETIN SULFATE [Concomitant]
     Active Substance: FRAMYCETIN SULFATE
     Indication: Product used for unknown indication
  713. GRAMICIDIN [Concomitant]
     Active Substance: GRAMICIDIN
     Indication: Product used for unknown indication
  714. ASACOL [Concomitant]
     Active Substance: MESALAMINE
     Indication: Crohn^s disease
     Dosage: TABLET (ENTERICCOATED
  715. AMINOSALICYLATE CALCIUM [Concomitant]
     Active Substance: AMINOSALICYLATE CALCIUM
     Indication: Product used for unknown indication
  716. CALCIUM LACTATE [Concomitant]
     Active Substance: CALCIUM LACTATE
     Indication: Product used for unknown indication
  717. DIPHENHYDRAMINE HYDROCHLORIDE [Concomitant]
     Active Substance: DIPHENHYDRAMINE HYDROCHLORIDE
     Indication: Product used for unknown indication
  718. DOXYCYCLINE HYCLATE [Concomitant]
     Active Substance: DOXYCYCLINE HYCLATE
     Indication: Rheumatoid arthritis
  719. DOXYCYCLINE HYCLATE [Concomitant]
     Active Substance: DOXYCYCLINE HYCLATE
  720. EMEND [Concomitant]
     Active Substance: APREPITANT
     Indication: Rheumatoid arthritis
  721. EMEND [Concomitant]
     Active Substance: APREPITANT
  722. EMEND [Concomitant]
     Active Substance: APREPITANT
  723. EMEND [Concomitant]
     Active Substance: APREPITANT
  724. EMEND [Concomitant]
     Active Substance: APREPITANT
  725. EMEND [Concomitant]
     Active Substance: APREPITANT
  726. EMEND [Concomitant]
     Active Substance: APREPITANT
  727. EMEND [Concomitant]
     Active Substance: APREPITANT
  728. EMEND [Concomitant]
     Active Substance: APREPITANT
  729. EMEND [Concomitant]
     Active Substance: APREPITANT
  730. ETHINYLESTRADIOL;IRON;NORETHISTERONE [Concomitant]
     Indication: Product used for unknown indication
  731. HYALURONIDASE [Concomitant]
     Active Substance: HYALURONIDASE
     Indication: Product used for unknown indication
  732. CLIOQUINOL\FLUMETHASONE [Concomitant]
     Active Substance: CLIOQUINOL\FLUMETHASONE
     Indication: Product used for unknown indication
  733. METHOTREXATE SODIUM [Concomitant]
     Active Substance: METHOTREXATE SODIUM
     Indication: Rheumatoid arthritis
  734. METHOTREXATE SODIUM [Concomitant]
     Active Substance: METHOTREXATE SODIUM
  735. METHOTREXATE SODIUM [Concomitant]
     Active Substance: METHOTREXATE SODIUM
  736. METHOTREXATE SODIUM [Concomitant]
     Active Substance: METHOTREXATE SODIUM
  737. METHOTREXATE SODIUM [Concomitant]
     Active Substance: METHOTREXATE SODIUM
  738. METHOTREXATE SODIUM [Concomitant]
     Active Substance: METHOTREXATE SODIUM
  739. METHOTREXATE SODIUM [Concomitant]
     Active Substance: METHOTREXATE SODIUM
  740. METHOTREXATE SODIUM [Concomitant]
     Active Substance: METHOTREXATE SODIUM
  741. METHOTREXATE SODIUM [Concomitant]
     Active Substance: METHOTREXATE SODIUM
  742. METHOTREXATE SODIUM [Concomitant]
     Active Substance: METHOTREXATE SODIUM
  743. METHOTREXATE SODIUM [Concomitant]
     Active Substance: METHOTREXATE SODIUM
  744. METHOTREXATE SODIUM [Concomitant]
     Active Substance: METHOTREXATE SODIUM
  745. METHOTREXATE SODIUM [Concomitant]
     Active Substance: METHOTREXATE SODIUM
  746. METHOTREXATE SODIUM [Concomitant]
     Active Substance: METHOTREXATE SODIUM
  747. METHOTREXATE SODIUM [Concomitant]
     Active Substance: METHOTREXATE SODIUM
  748. METHOTREXATE SODIUM [Concomitant]
     Active Substance: METHOTREXATE SODIUM
  749. METHOTREXATE SODIUM [Concomitant]
     Active Substance: METHOTREXATE SODIUM
  750. METHOTREXATE SODIUM [Concomitant]
     Active Substance: METHOTREXATE SODIUM
  751. METHOTREXATE SODIUM [Concomitant]
     Active Substance: METHOTREXATE SODIUM
  752. METHOTREXATE SODIUM [Concomitant]
     Active Substance: METHOTREXATE SODIUM
  753. METHOTREXATE SODIUM [Concomitant]
     Active Substance: METHOTREXATE SODIUM
  754. METHOTREXATE SODIUM [Concomitant]
     Active Substance: METHOTREXATE SODIUM
  755. METHOTREXATE SODIUM [Concomitant]
     Active Substance: METHOTREXATE SODIUM
  756. METHOTREXATE SODIUM [Concomitant]
     Active Substance: METHOTREXATE SODIUM
  757. METHOTREXATE SODIUM [Concomitant]
     Active Substance: METHOTREXATE SODIUM
  758. METHOTREXATE SODIUM [Concomitant]
     Active Substance: METHOTREXATE SODIUM
  759. METHOTREXATE SODIUM [Concomitant]
     Active Substance: METHOTREXATE SODIUM
  760. METHOTREXATE SODIUM [Concomitant]
     Active Substance: METHOTREXATE SODIUM
  761. METHOTREXATE SODIUM [Concomitant]
     Active Substance: METHOTREXATE SODIUM
  762. MORPHINE [Concomitant]
     Active Substance: MORPHINE
     Indication: Rheumatoid arthritis
  763. PARA-AMINOSALICYLIC ACID [Concomitant]
     Active Substance: AMINOSALICYLIC ACID
     Indication: Product used for unknown indication
  764. PERCOCET [Concomitant]
     Active Substance: ACETAMINOPHEN\OXYCODONE HYDROCHLORIDE
     Indication: Product used for unknown indication
  765. PREVACID [Concomitant]
     Active Substance: LANSOPRAZOLE
     Indication: Product used for unknown indication
  766. CETIRIZINE HYDROCHLORIDE [Concomitant]
     Active Substance: CETIRIZINE HYDROCHLORIDE
     Indication: Urticaria
  767. CETIRIZINE HYDROCHLORIDE [Concomitant]
     Active Substance: CETIRIZINE HYDROCHLORIDE
     Indication: Rheumatoid arthritis
  768. CETIRIZINE HYDROCHLORIDE [Concomitant]
     Active Substance: CETIRIZINE HYDROCHLORIDE
  769. CETIRIZINE HYDROCHLORIDE [Concomitant]
     Active Substance: CETIRIZINE HYDROCHLORIDE
  770. CETIRIZINE HYDROCHLORIDE [Concomitant]
     Active Substance: CETIRIZINE HYDROCHLORIDE
  771. CETIRIZINE HYDROCHLORIDE [Concomitant]
     Active Substance: CETIRIZINE HYDROCHLORIDE
  772. CETIRIZINE HYDROCHLORIDE [Concomitant]
     Active Substance: CETIRIZINE HYDROCHLORIDE
  773. CETIRIZINE HYDROCHLORIDE [Concomitant]
     Active Substance: CETIRIZINE HYDROCHLORIDE
  774. ALBUTEROL [Concomitant]
     Active Substance: ALBUTEROL
     Indication: Product used for unknown indication
  775. DICLOFENAC POTASSIUM [Concomitant]
     Active Substance: DICLOFENAC POTASSIUM
     Indication: Product used for unknown indication
  776. DICLOFENAC POTASSIUM [Concomitant]
     Active Substance: DICLOFENAC POTASSIUM
  777. HYALURONIDASE (HUMAN RECOMBINANT) [Concomitant]
     Active Substance: HYALURONIDASE (HUMAN RECOMBINANT)
     Indication: Rheumatoid arthritis
  778. HYALURONIDASE (HUMAN RECOMBINANT) [Concomitant]
     Active Substance: HYALURONIDASE (HUMAN RECOMBINANT)
  779. HYALURONIDASE (HUMAN RECOMBINANT) [Concomitant]
     Active Substance: HYALURONIDASE (HUMAN RECOMBINANT)
  780. ZESTRIL [Concomitant]
     Active Substance: LISINOPRIL
     Indication: Product used for unknown indication
  781. AIMOVIG [Concomitant]
     Active Substance: ERENUMAB-AOOE
     Indication: Migraine
  782. AIMOVIG [Concomitant]
     Active Substance: ERENUMAB-AOOE
  783. BERINERT [Concomitant]
     Active Substance: HUMAN C1-ESTERASE INHIBITOR
     Indication: Product used for unknown indication
  784. QUETIAPINE FUMARATE [Concomitant]
     Active Substance: QUETIAPINE FUMARATE
     Indication: Product used for unknown indication
     Dosage: TABLET (IMMEDIATE RELEASE)
  785. DILTIAZEM [Concomitant]
     Active Substance: DILTIAZEM
     Indication: Product used for unknown indication
  786. DILTIAZEM [Concomitant]
     Active Substance: DILTIAZEM
     Dosage: CAPSULE, EXTENDED RELEASE
  787. HYRIMOZ [Concomitant]
     Active Substance: ADALIMUMAB-ADAZ
     Indication: Rheumatoid arthritis
  788. HYRIMOZ [Concomitant]
     Active Substance: ADALIMUMAB-ADAZ
     Indication: Psoriatic arthropathy
  789. HYRIMOZ [Concomitant]
     Active Substance: ADALIMUMAB-ADAZ
  790. HYRIMOZ [Concomitant]
     Active Substance: ADALIMUMAB-ADAZ
     Dosage: SOLUTION SUBCUTANEOUS
  791. HYRIMOZ [Concomitant]
     Active Substance: ADALIMUMAB-ADAZ
  792. MESALAMINE [Concomitant]
     Active Substance: MESALAMINE
     Indication: Product used for unknown indication
  793. TRIPROLIDINE HYDROCHLORIDE [Concomitant]
     Active Substance: TRIPROLIDINE HYDROCHLORIDE
     Indication: Rheumatoid arthritis
  794. TRIPROLIDINE HYDROCHLORIDE [Concomitant]
     Active Substance: TRIPROLIDINE HYDROCHLORIDE
  795. TOPICORT [Concomitant]
     Active Substance: DESOXIMETASONE
     Indication: Rheumatoid arthritis
  796. TOPICORT [Concomitant]
     Active Substance: DESOXIMETASONE
  797. PREGABALIN [Concomitant]
     Active Substance: PREGABALIN
     Indication: Product used for unknown indication
  798. LEFLUNOMIDE [Concomitant]
     Active Substance: LEFLUNOMIDE
     Indication: Rheumatoid arthritis
  799. LEFLUNOMIDE [Concomitant]
     Active Substance: LEFLUNOMIDE
  800. LEFLUNOMIDE [Concomitant]
     Active Substance: LEFLUNOMIDE
  801. LEFLUNOMIDE [Concomitant]
     Active Substance: LEFLUNOMIDE
  802. LEFLUNOMIDE [Concomitant]
     Active Substance: LEFLUNOMIDE
  803. HYDROCORTISONE [Concomitant]
     Active Substance: HYDROCORTISONE
     Indication: Rheumatoid arthritis
  804. HYDROCORTISONE [Concomitant]
     Active Substance: HYDROCORTISONE
  805. HYDROCORTISONE [Concomitant]
     Active Substance: HYDROCORTISONE
  806. DICLOFENAC SANDOZ [DICLOFENAC SODIUM] [Concomitant]
     Indication: Rheumatoid arthritis
     Dosage: CAPSULE, EXTENDED RELEASE
  807. DICLOFENAC SODIUM [Concomitant]
     Active Substance: DICLOFENAC SODIUM
     Indication: Product used for unknown indication
     Dosage: SOLUTION OPHTHALMIC
  808. DICLOFENAC SODIUM [Concomitant]
     Active Substance: DICLOFENAC SODIUM
     Dosage: SOLUTION OPHTHALMIC
  809. DICLOFENAC SODIUM [Concomitant]
     Active Substance: DICLOFENAC SODIUM
     Indication: Rheumatoid arthritis
  810. DICLOFENAC SODIUM [Concomitant]
     Active Substance: DICLOFENAC SODIUM
     Indication: Osteoarthritis
  811. DICLOFENAC SODIUM [Concomitant]
     Active Substance: DICLOFENAC SODIUM
     Indication: Inflammation
  812. DICLOFENAC SODIUM [Concomitant]
     Active Substance: DICLOFENAC SODIUM
  813. DICLOFENAC SODIUM [Concomitant]
     Active Substance: DICLOFENAC SODIUM
  814. APREMILAST [Concomitant]
     Active Substance: APREMILAST
     Indication: Product used for unknown indication
  815. APREMILAST [Concomitant]
     Active Substance: APREMILAST
  816. ALENDRONATE SODIUM [Concomitant]
     Active Substance: ALENDRONATE SODIUM
     Indication: Rheumatoid arthritis
  817. ALENDRONATE SODIUM [Concomitant]
     Active Substance: ALENDRONATE SODIUM
  818. ALENDRONATE SODIUM [Concomitant]
     Active Substance: ALENDRONATE SODIUM
  819. MINOCYCLINE HYDROCHLORIDE [Concomitant]
     Active Substance: MINOCYCLINE HYDROCHLORIDE
     Indication: Product used for unknown indication
  820. DOCONEXENT [Concomitant]
     Active Substance: DOCONEXENT
     Indication: Product used for unknown indication
  821. LISINOPRIL [Concomitant]
     Active Substance: LISINOPRIL
     Indication: Product used for unknown indication
  822. METFORMIN HYDROCHLORIDE [Concomitant]
     Active Substance: METFORMIN HYDROCHLORIDE
     Indication: Migraine
  823. NAPROXEN [Concomitant]
     Active Substance: NAPROXEN
     Indication: Product used for unknown indication

REACTIONS (1)
  - Death [Fatal]
